FAERS Safety Report 8266142-8 (Version None)
Quarter: 2012Q2

REPORT INFORMATION
  Report Type: 
  Country: None (occurrence: None)
  Receive Date: 20120406
  Receipt Date: 20120330
  Transmission Date: 20120825
  Serious: Yes (Other)
  Sender: FDA-Public Use
  Company Number: PHHY2012JP027781

PATIENT
  Age: 85 Year
  Sex: Male

DRUGS (1)
  1. HYDERGINE [Suspect]
     Dosage: 6 MG, QD

REACTIONS (4)
  - TRANSIENT ISCHAEMIC ATTACK [None]
  - DIZZINESS [None]
  - ALTERED STATE OF CONSCIOUSNESS [None]
  - BLOOD PRESSURE SYSTOLIC DECREASED [None]
